FAERS Safety Report 6230518-0 (Version None)
Quarter: 2009Q2

REPORT INFORMATION
  Report Type: 
  Country: None (occurrence: None)
  Receive Date: 20090615
  Receipt Date: 20090604
  Transmission Date: 20091009
  Serious: No
  Sender: FDA-Public Use
  Company Number: US-ABBOTT-09P-163-0578201-00

PATIENT
  Sex: Female
  Weight: 64.468 kg

DRUGS (6)
  1. TRILIPIX [Suspect]
     Indication: BLOOD CHOLESTEROL
     Dates: start: 20090601
  2. AVANDIA [Concomitant]
     Indication: DIABETES MELLITUS
  3. JUNUMET [Concomitant]
     Indication: DIABETES MELLITUS
  4. FISH OIL [Concomitant]
     Indication: DRUG USE FOR UNKNOWN INDICATION
  5. ASPIRIN [Concomitant]
     Indication: DRUG USE FOR UNKNOWN INDICATION
  6. COZAAR [Concomitant]
     Indication: BLOOD PRESSURE

REACTIONS (2)
  - PARAESTHESIA [None]
  - SENSORY DISTURBANCE [None]
